FAERS Safety Report 4990610-5 (Version None)
Quarter: 2006Q2

REPORT INFORMATION
  Report Type: 
  Country: None (occurrence: None)
  Receive Date: 20060427
  Receipt Date: 20060414
  Transmission Date: 20061013
  Serious: Yes (Hospitalization, Other)
  Sender: FDA-Public Use
  Company Number: 2005040008

PATIENT
  Age: 70 Year
  Sex: Female

DRUGS (18)
  1. SILDENAFIL CITRATE [Suspect]
     Indication: PULMONARY HYPERTENSION
     Dosage: 60 MG (20 MG, 3 IN 1 D), ORAL
     Route: 048
     Dates: start: 20050301
  2. FLOLAN [Suspect]
     Indication: PULMONARY HYPERTENSION
     Dosage: 24.8 NG/KG/MIN, INTRAVENOUS
     Route: 042
     Dates: start: 20040924
  3. POTASSIUM CHLORIDE [Concomitant]
  4. LEVOTHYROXINE SODIUM [Concomitant]
  5. BUPROPION [Concomitant]
  6. MAGNESIUM [Concomitant]
  7. LASIX [Concomitant]
  8. WARFARIN SODIUM [Concomitant]
  9. LISINOPRIL [Concomitant]
  10. DIGOXIN [Concomitant]
  11. PANTOPRAZOLE [Concomitant]
  12. GLIPIZIDE [Concomitant]
  13. LOPRESSOR [Concomitant]
  14. GOLD [Concomitant]
  15. LIPITOR [Concomitant]
  16. GEMFIBROZIL [Concomitant]
  17. BECONASE (BECLOMETASONE DIPROPIONATE) [Concomitant]
  18. OXYGEN [Concomitant]

REACTIONS (6)
  - FATIGUE [None]
  - FLUSHING [None]
  - INFECTION [None]
  - NAUSEA [None]
  - RASH ERYTHEMATOUS [None]
  - THROMBOSIS [None]
